FAERS Safety Report 6298613-8 (Version None)
Quarter: 2009Q3

REPORT INFORMATION
  Report Type: 
  Country: None (occurrence: None)
  Receive Date: 20090804
  Receipt Date: 20090724
  Transmission Date: 20100115
  Serious: Yes (Death)
  Sender: FDA-Public Use
  Company Number: 2009-02309

PATIENT
  Age: 86 Year
  Sex: Male
  Weight: 84.1 kg

DRUGS (14)
  1. VELCADE [Suspect]
     Indication: MULTIPLE MYELOMA
     Dosage: 1.6 MG/M2, UNK, INTRAVENOUS
     Route: 042
     Dates: start: 20090512, end: 20090602
  2. DEXAMETHASONE TAB [Suspect]
     Indication: MULTIPLE MYELOMA
     Dosage: 40 MG, UNK, ORAL 20 MG, UNK, ORAL
     Route: 048
     Dates: start: 20090513, end: 20090603
  3. DEXAMETHASONE TAB [Suspect]
     Indication: MULTIPLE MYELOMA
     Dosage: 40 MG, UNK, ORAL 20 MG, UNK, ORAL
     Route: 048
     Dates: start: 20090512
  4. METFORMIN HCL [Concomitant]
  5. DIGOXIN [Concomitant]
  6. ASPIRIN [Concomitant]
  7. LEVOTHYROXINE SODIUM [Concomitant]
  8. RANITIDINE [Concomitant]
  9. METOPROLOL SUCCINATE [Concomitant]
  10. GLYBURIDE [Concomitant]
  11. LOVASTATIN [Concomitant]
  12. TAMSULOSIN HCL [Concomitant]
  13. WARFARIN SODIUM [Concomitant]
  14. ACYCLOVIR [Concomitant]

REACTIONS (2)
  - ACUTE MYOCARDIAL INFARCTION [None]
  - HYPERGLYCAEMIA [None]
